FAERS Safety Report 10309019 (Version 4)
Quarter: 2015Q2

REPORT INFORMATION
  Report Type: Spontaneous
  Country: JP (occurrence: JP)
  Receive Date: 20140716
  Receipt Date: 20150414
  Transmission Date: 20150821
  Serious: Yes (Hospitalization, Disabling, Other)
  Sender: FDA-Public Use
  Company Number: PHHY2014JP086424

PATIENT
  Age: 29 Year
  Sex: Female
  Weight: 40 kg

DRUGS (8)
  1. PRIDOL                             /01152101/ [Concomitant]
     Indication: IMMUNOSUPPRESSION
     Dosage: 250 MG, QD (2 DAY COURSE)
     Route: 042
     Dates: start: 20140625, end: 20140704
  2. TAKEPRON [Concomitant]
     Active Substance: LANSOPRAZOLE
     Indication: PROPHYLAXIS AGAINST GASTROINTESTINAL ULCER
     Dosage: 30 MG, BID
     Route: 042
     Dates: start: 20140625, end: 20140628
  3. SIMULECT [Suspect]
     Active Substance: BASILIXIMAB
     Indication: RENAL TRANSPLANT
     Dosage: 20 MG, QD
     Route: 042
     Dates: start: 20140625, end: 20140629
  4. GRACEPTOR [Suspect]
     Active Substance: TACROLIMUS
     Indication: RENAL TRANSPLANT
     Dosage: 5 MG, UNK (4 TO 5 MG)
     Route: 048
     Dates: start: 20140620
  5. LASIX [Concomitant]
     Active Substance: FUROSEMIDE
     Indication: POLYURIA
     Dosage: 20 MG, BID, 20-40MG
     Route: 042
     Dates: start: 20140625, end: 20140627
  6. PRIMPERAN [Concomitant]
     Active Substance: METOCLOPRAMIDE HYDROCHLORIDE
     Indication: NAUSEA
     Dosage: 10 MG, QD
     Route: 042
     Dates: start: 20140625, end: 20140627
  7. CERTICAN [Suspect]
     Active Substance: EVEROLIMUS
     Indication: RENAL TRANSPLANT
     Dosage: 1.5 MG, QD
     Route: 048
     Dates: start: 20140620, end: 20140627
  8. CEFAMEZIN ALPHA [Concomitant]
     Active Substance: CEFAZOLIN SODIUM
     Indication: INFECTION PROPHYLAXIS
     Dosage: 1 G, QD
     Route: 042
     Dates: start: 20140625, end: 20140626

REACTIONS (8)
  - Haematuria [Recovered/Resolved]
  - Weight increased [Unknown]
  - Thrombotic microangiopathy [Recovered/Resolved]
  - Viral infection [Unknown]
  - Platelet count decreased [Recovered/Resolved]
  - Systemic lupus erythematosus [Unknown]
  - Bladder tamponade [Unknown]
  - Nephropathy [Recovered/Resolved]

NARRATIVE: CASE EVENT DATE: 2014
